FAERS Safety Report 6785810-8 (Version None)
Quarter: 2010Q2

REPORT INFORMATION
  Report Type: 
  Country: None (occurrence: None)
  Receive Date: 20100623
  Receipt Date: 20100607
  Transmission Date: 20101027
  Serious: Yes (Hospitalization, Disabling, Other)
  Sender: FDA-Public Use
  Company Number: CA-ASTRAZENECA-2009UW10146

PATIENT
  Age: 66 Year
  Sex: Male
  Weight: 87 kg

DRUGS (15)
  1. CRESTOR [Suspect]
     Indication: DYSLIPIDAEMIA
     Route: 048
     Dates: start: 20071201, end: 20090201
  2. NOVO-AMIODARONE [Suspect]
     Indication: ATRIAL FIBRILLATION
     Route: 048
     Dates: start: 20071201, end: 20080101
  3. NOVO-AMIODARONE [Suspect]
     Route: 048
     Dates: start: 20080101, end: 20080701
  4. NOVO-AMIODARONE [Suspect]
     Route: 048
     Dates: start: 20080701, end: 20090201
  5. ACEBUTOLOL HYDROCHLORIDE [Suspect]
     Route: 065
  6. DARBEPOETIN ALFA [Concomitant]
     Dates: start: 20081001
  7. HYDROCHLOROTHIAZIDE [Concomitant]
     Route: 048
     Dates: start: 20080701
  8. ALDACTONE [Concomitant]
     Dosage: DAILY
     Route: 065
     Dates: start: 20080701
  9. APO K [Concomitant]
     Route: 048
     Dates: start: 20080701
  10. SYNTHROID [Concomitant]
     Dates: start: 20080701
  11. FUROSEMIDE [Concomitant]
     Dates: start: 20071201
  12. FUROSEMIDE [Concomitant]
     Dates: start: 20080601
  13. COUMADIN [Concomitant]
     Dates: start: 20071201
  14. ARANESP [Concomitant]
     Route: 042
  15. SECTRAL [Concomitant]

REACTIONS (11)
  - AXONAL NEUROPATHY [None]
  - BLOOD CREATINE PHOSPHOKINASE INCREASED [None]
  - DECUBITUS ULCER [None]
  - DYSPNOEA [None]
  - INJURY [None]
  - MYOFASCITIS [None]
  - MYOPATHY [None]
  - MYOPATHY TOXIC [None]
  - MYOSITIS [None]
  - PERIPHERAL SENSORY NEUROPATHY [None]
  - POLYMYOSITIS [None]
